FAERS Safety Report 16648441 (Version 3)
Quarter: 2019Q3

REPORT INFORMATION
  Report Type: Spontaneous
  Country: DE (occurrence: DE)
  Receive Date: 20190730
  Receipt Date: 20190910
  Transmission Date: 20191004
  Serious: Yes (Death, Hospitalization)
  Sender: FDA-Public Use
  Company Number: DE-MYLANLABS-2019M1071592

PATIENT
  Age: 22 Year
  Sex: Female

DRUGS (5)
  1. KEPPRA [Suspect]
     Active Substance: LEVETIRACETAM
     Indication: SEIZURE
     Dosage: 100 MILLIGRAM/KILOGRAM
     Route: 065
  2. LEVETIRACETAM. [Suspect]
     Active Substance: LEVETIRACETAM
     Indication: SEIZURE
     Dosage: UNKNOWN
  3. MIDAZOLAM [Concomitant]
     Active Substance: MIDAZOLAM HYDROCHLORIDE
     Indication: SEIZURE
     Dosage: UNK
  4. CARBAMAZEPINE. [Suspect]
     Active Substance: CARBAMAZEPINE
     Indication: SEIZURE
     Dosage: UNKNOWN
  5. TEGRETAL [Suspect]
     Active Substance: CARBAMAZEPINE
     Indication: SEIZURE
     Dosage: 1000 MILLIGRAM/KILOGRAM
     Route: 065

REACTIONS (17)
  - Hepatic necrosis [Fatal]
  - Renal failure [Fatal]
  - Multiple organ dysfunction syndrome [Fatal]
  - Shock [Unknown]
  - Condition aggravated [Unknown]
  - Acidosis [Fatal]
  - Liver injury [Fatal]
  - Fall [Unknown]
  - Hypotension [Unknown]
  - Seizure [Unknown]
  - Acute hepatic failure [Fatal]
  - Pulmonary oedema [Unknown]
  - Tachycardia [Unknown]
  - Hemiparesis [Unknown]
  - Restlessness [Unknown]
  - Renal tubular necrosis [Fatal]
  - Pyrexia [Unknown]
